FAERS Safety Report 4887427-9 (Version None)
Quarter: 2006Q1

REPORT INFORMATION
  Report Type: 
  Country: None (occurrence: None)
  Receive Date: 20060123
  Receipt Date: 20060111
  Transmission Date: 20060701
  Serious: Yes (Hospitalization)
  Sender: FDA-Public Use
  Company Number: US-AMGEN-US149727

PATIENT
  Sex: Female
  Weight: 65.4 kg

DRUGS (11)
  1. NEULASTA [Suspect]
     Indication: CHEMOTHERAPY
     Route: 058
     Dates: start: 20030912
  2. TAXOL [Suspect]
     Dates: start: 20030709, end: 20031105
  3. TAXOL [Suspect]
     Dates: start: 20050809, end: 20050830
  4. PROCRIT [Concomitant]
     Dates: start: 20030714, end: 20031120
  5. PROCRIT [Concomitant]
     Dates: start: 20050826, end: 20051121
  6. CARBOPLATIN [Concomitant]
     Dates: start: 20030709, end: 20031105
  7. CARBOPLATIN [Concomitant]
     Dates: start: 20050809, end: 20051216
  8. LEVOTHYROXINE SODIUM [Concomitant]
     Route: 048
  9. LISINOPRIL [Concomitant]
     Route: 048
  10. COLACE [Concomitant]
  11. COMPAZINE [Concomitant]

REACTIONS (4)
  - BLOOD POTASSIUM DECREASED [None]
  - COLITIS ISCHAEMIC [None]
  - OEDEMA PERIPHERAL [None]
  - RECTAL HAEMORRHAGE [None]
